FAERS Safety Report 8986069 (Version 1)
Quarter: 2012Q4

REPORT INFORMATION
  Report Type: 
  Country: US (occurrence: None)
  Receive Date: 20121219
  Receipt Date: 20121219
  Transmission Date: 20130627
  Serious: Yes (Hospitalization)
  Sender: FDA-Public Use
  Company Number: None

PATIENT
  Sex: Female
  Weight: 71.75 kg

DRUGS (2)
  1. CISPLATIN [Suspect]
  2. ETOPOSIDE (VP-16) [Suspect]

REACTIONS (5)
  - Odynophagia [None]
  - Neutropenia [None]
  - Weight decreased [None]
  - Dehydration [None]
  - Inadequate analgesia [None]
